FAERS Safety Report 19279343 (Version 2)
Quarter: 2021Q2

REPORT INFORMATION
  Report Type: Spontaneous
  Country: US (occurrence: US)
  Receive Date: 20210520
  Receipt Date: 20210616
  Transmission Date: 20210717
  Serious: No
  Sender: FDA-Public Use
  Company Number: US-BIOGEN-2021BI01010930

PATIENT
  Age: 40 Year
  Sex: Male

DRUGS (2)
  1. SPINRAZA [Suspect]
     Active Substance: NUSINERSEN
     Indication: SPINAL MUSCULAR ATROPHY
     Route: 037
     Dates: start: 20180420, end: 20201019
  2. COVID?19 VACCINE NOS. [Suspect]
     Active Substance: COVID-19 VACCINE NOS
     Indication: COVID-19 PROPHYLAXIS
     Route: 065

REACTIONS (5)
  - Procedural anxiety [Unknown]
  - Muscular weakness [Unknown]
  - Asthenia [Unknown]
  - Vaccination complication [Unknown]
  - Fatigue [Unknown]

NARRATIVE: CASE EVENT DATE: 202101
